FAERS Safety Report 7789395-9 (Version None)
Quarter: 2011Q3

REPORT INFORMATION
  Report Type: 
  Country: None (occurrence: None)
  Receive Date: 20110930
  Receipt Date: 20110810
  Transmission Date: 20111222
  Serious: Yes (Other)
  Sender: FDA-Public Use
  Company Number: FR-CUBIST-2011S1000215

PATIENT
  Age: 75 Year
  Sex: Male
  Weight: 82 kg

DRUGS (3)
  1. CUBICIN [Suspect]
     Indication: STAPHYLOCOCCAL INFECTION
     Route: 042
     Dates: start: 20100821, end: 20101022
  2. PERINDOPRIL ERBUMINE [Suspect]
     Indication: HYPERTENSION
     Route: 048
  3. GENTAMICIN [Suspect]
     Indication: INFECTION
     Route: 042
     Dates: start: 20100818, end: 20100909

REACTIONS (1)
  - NEPHROPATHY TOXIC [None]
